FAERS Safety Report 7575739-X (Version None)
Quarter: 2011Q2

REPORT INFORMATION
  Report Type: 
  Country: None (occurrence: None)
  Receive Date: 20110628
  Receipt Date: 20110620
  Transmission Date: 20111010
  Serious: No
  Sender: FDA-Public Use
  Company Number: US-BIOGENIDEC-2011BI017073

PATIENT
  Sex: Female

DRUGS (1)
  1. TYSABRI [Suspect]
     Indication: MULTIPLE SCLEROSIS
     Route: 042
     Dates: start: 20100408

REACTIONS (9)
  - VISUAL IMPAIRMENT [None]
  - HYPOACUSIS [None]
  - CLAUSTROPHOBIA [None]
  - VISION BLURRED [None]
  - BALANCE DISORDER [None]
  - GAIT DISTURBANCE [None]
  - CONTUSION [None]
  - PAIN [None]
  - FALL [None]
